FAERS Safety Report 14912629 (Version 1)
Quarter: 2018Q2

REPORT INFORMATION
  Report Type: Spontaneous
  Country: HR (occurrence: HR)
  Receive Date: 20180518
  Receipt Date: 20180518
  Transmission Date: 20180711
  Serious: Yes (Death)
  Sender: FDA-Public Use
  Company Number: HR-MYLANLABS-2018M1031676

PATIENT
  Age: 68 Year
  Sex: Female

DRUGS (3)
  1. ATENOLOL. [Concomitant]
     Active Substance: ATENOLOL
     Indication: ATRIAL FIBRILLATION
     Dosage: 25 MG, UNK
  2. OXAZEPAM. [Concomitant]
     Active Substance: OXAZEPAM
     Indication: DEPRESSION
     Dosage: 10 MG, UNK
  3. RYTMONORM 150 MG [Suspect]
     Active Substance: PROPAFENONE
     Indication: ATRIAL FIBRILLATION
     Dosage: DOSE NOT SPECIFIED

REACTIONS (11)
  - Unresponsive to stimuli [Fatal]
  - Bundle branch block left [Fatal]
  - Hypotension [Fatal]
  - Electrocardiogram QRS complex prolonged [Fatal]
  - Toxicity to various agents [Fatal]
  - Cardiac arrest [Fatal]
  - Bradycardia [Fatal]
  - Haemodynamic instability [Fatal]
  - Metabolic acidosis [Fatal]
  - Depressed level of consciousness [Fatal]
  - Nausea [Fatal]
